FAERS Safety Report 8479619-7 (Version None)
Quarter: 2012Q2

REPORT INFORMATION
  Report Type: 
  Country: None (occurrence: None)
  Receive Date: 20120629
  Receipt Date: 20120627
  Transmission Date: 20120825
  Serious: No
  Sender: FDA-Public Use
  Company Number: US-PFIZER INC-2012155464

PATIENT
  Sex: Female

DRUGS (2)
  1. PREMARIN [Suspect]
     Indication: VAGINAL INFECTION
     Dosage: UNK
     Route: 048
  2. PREMARIN [Suspect]
     Indication: VULVOVAGINAL DRYNESS

REACTIONS (1)
  - DRUG INEFFECTIVE [None]
